FAERS Safety Report 24252276 (Version 1)
Quarter: 2024Q3

REPORT INFORMATION
  Report Type: Other
  Country: US (occurrence: US)
  Receive Date: 20240827
  Receipt Date: 20240827
  Transmission Date: 20241017
  Serious: No
  Sender: SUNNY PHARMTECH
  Company Number: US-SP-2024-38604533P2

PATIENT
  Age: 32 Year
  Sex: Female

DRUGS (2)
  1. CARBOPROST [Suspect]
     Active Substance: CARBOPROST
     Indication: Uterine leiomyoma
     Dosage: 80 MCG
     Route: 050
  2. EPINEPHRINE\LIDOCAINE HYDROCHLORIDE [Concomitant]
     Active Substance: EPINEPHRINE\LIDOCAINE HYDROCHLORIDE
     Indication: Vaginal dilation procedure
     Dosage: 18 ML
     Route: 019

REACTIONS (2)
  - Nausea [Recovered/Resolved]
  - Vomiting [Recovered/Resolved]
